FAERS Safety Report 6402934-5 (Version None)
Quarter: 2009Q4

REPORT INFORMATION
  Report Type: 
  Country: None (occurrence: None)
  Receive Date: 20091014
  Receipt Date: 20091014
  Transmission Date: 20100525
  Serious: Yes (Death)
  Sender: FDA-Public Use
  Company Number: None

PATIENT
  Age: 71 Year
  Sex: Female
  Weight: 65.7716 kg

DRUGS (2)
  1. XELODA [Suspect]
     Dosage: 4 TWICE PER DAY
     Dates: start: 20090525
  2. XELODA [Suspect]
     Dosage: 1 TWICE/DAY
     Dates: start: 20090525

REACTIONS (1)
  - GENERAL PHYSICAL HEALTH DETERIORATION [None]
